FAERS Safety Report 21054063 (Version 3)
Quarter: 2024Q1

REPORT INFORMATION
  Report Type: Spontaneous
  Country: US (occurrence: US)
  Receive Date: 20220707
  Receipt Date: 20240307
  Transmission Date: 20240410
  Serious: No
  Sender: FDA-Public Use
  Company Number: US-PFIZER INC-PV202200015188

PATIENT
  Age: 74 Year
  Sex: Female

DRUGS (1)
  1. XELJANZ [Suspect]
     Active Substance: TOFACITINIB CITRATE
     Indication: Arthralgia
     Dosage: 5 MG

REACTIONS (5)
  - Arthritis [Unknown]
  - Stomatitis [Recovering/Resolving]
  - Pain [Recovering/Resolving]
  - Diarrhoea [Unknown]
  - Off label use [Unknown]
